FAERS Safety Report 14925813 (Version 2)
Quarter: 2018Q2

REPORT INFORMATION
  Report Type: Report from Study
  Country: US (occurrence: US)
  Receive Date: 20180522
  Receipt Date: 20180531
  Transmission Date: 20180711
  Serious: Yes (Hospitalization)
  Sender: FDA-Public Use
  Company Number: US-ACTELION-A-NJ2018-172424

PATIENT
  Age: 87 Year
  Sex: Female
  Weight: 56.69 kg

DRUGS (2)
  1. OPSUMIT [Suspect]
     Active Substance: MACITENTAN
     Indication: PULMONARY ARTERIAL HYPERTENSION
     Dosage: 10 MG, QD
     Route: 048
  2. DILTIAZEM. [Concomitant]
     Active Substance: DILTIAZEM

REACTIONS (6)
  - Pain [Unknown]
  - Hypertension [Unknown]
  - Pneumonia [Unknown]
  - Chills [Unknown]
  - Nasopharyngitis [Unknown]
  - Pyrexia [Unknown]
